FAERS Safety Report 4532749-4 (Version None)
Quarter: 2004Q4

REPORT INFORMATION
  Report Type: 
  Country: None (occurrence: None)
  Receive Date: 20041221
  Receipt Date: 20041210
  Transmission Date: 20050328
  Serious: Yes (Other)
  Sender: FDA-Public Use
  Company Number: 200419509US

PATIENT
  Sex: Female
  Weight: 48.5 kg

DRUGS (2)
  1. DOCETAXEL [Suspect]
     Indication: ANGIOSARCOMA
     Route: 042
     Dates: start: 20041111, end: 20041126
  2. DOXERCALCIFEROL [Suspect]
     Indication: ANGIOSARCOMA
     Route: 048
     Dates: start: 20041109, end: 20041210

REACTIONS (3)
  - FATIGUE [None]
  - HYPONATRAEMIA [None]
  - STOMATITIS [None]
